FAERS Safety Report 11214420 (Version 1)
Quarter: 2015Q2

REPORT INFORMATION
  Report Type: Spontaneous
  Country: DE (occurrence: DE)
  Receive Date: 20150624
  Receipt Date: 20150624
  Transmission Date: 20150821
  Serious: Yes (Hospitalization)
  Sender: FDA-Public Use
  Company Number: DE-ASTRAZENECA-2015SE60429

PATIENT

DRUGS (1)
  1. BELOC-ZOK [Suspect]
     Active Substance: METOPROLOL SUCCINATE
     Route: 048

REACTIONS (1)
  - Autoimmune haemolytic anaemia [Unknown]
